FAERS Safety Report 7646365-9 (Version None)
Quarter: 2011Q3

REPORT INFORMATION
  Report Type: 
  Country: None (occurrence: None)
  Receive Date: 20110801
  Receipt Date: 20110721
  Transmission Date: 20111222
  Serious: No
  Sender: FDA-Public Use
  Company Number: JP-JNJFOC-20110703666

PATIENT
  Age: 7 Decade
  Sex: Female

DRUGS (8)
  1. FENTANYL CITRATE [Suspect]
     Dosage: 12.5 UG/HR X 4
     Route: 062
     Dates: start: 20110703
  2. FENTANYL CITRATE [Suspect]
     Dosage: 50 UG/HR X 3
     Route: 062
     Dates: start: 20110706
  3. SELBEX [Concomitant]
     Route: 048
  4. PRIMPERAN TAB [Concomitant]
     Route: 065
  5. FAMOTIDINE [Concomitant]
     Route: 065
  6. FENTANYL CITRATE [Suspect]
     Dosage: 50 UG/HR X 3 + 25 UG/HR X 1
     Route: 062
     Dates: start: 20110711
  7. GASMOTIN [Concomitant]
     Route: 048
  8. FENTANYL CITRATE [Suspect]
     Indication: CANCER PAIN
     Dosage: 50 UG/R X 3 AND ONE PATCH OF 12.5 UG/HR
     Route: 062

REACTIONS (3)
  - NAUSEA [None]
  - SOMNOLENCE [None]
  - INAPPROPRIATE SCHEDULE OF DRUG ADMINISTRATION [None]
